FAERS Safety Report 10693182 (Version 2)
Quarter: 2015Q1

REPORT INFORMATION
  Report Type: Spontaneous
  Country: US (occurrence: US)
  Receive Date: 20150106
  Receipt Date: 20150202
  Transmission Date: 20150720
  Serious: Yes (Hospitalization, Other)
  Sender: FDA-Public Use
  Company Number: US-MYLANLABS-2014M1015798

PATIENT

DRUGS (18)
  1. ZYRTEC [Concomitant]
     Active Substance: CETIRIZINE HYDROCHLORIDE
     Dosage: 10 MG, QD
  2. DUONEB [Concomitant]
     Active Substance: ALBUTEROL SULFATE\IPRATROPIUM BROMIDE
  3. SIMVASTATIN. [Concomitant]
     Active Substance: SIMVASTATIN
     Dosage: 40 MG, QD
  4. LASIX [Concomitant]
     Active Substance: FUROSEMIDE
  5. DILTIAZEM [Suspect]
     Active Substance: DILTIAZEM
     Dosage: 60 MG, BID
     Dates: end: 20140902
  6. DILTIAZEM [Suspect]
     Active Substance: DILTIAZEM
     Dosage: 120 MG, AM
     Dates: start: 20140903, end: 20140903
  7. VITAMIN C [Concomitant]
     Active Substance: ASCORBIC ACID
  8. FLEXERIL [Concomitant]
     Active Substance: CYCLOBENZAPRINE HYDROCHLORIDE
     Dosage: 5 MG, TID
  9. SOTALOL. [Suspect]
     Active Substance: SOTALOL
     Indication: ATRIAL FIBRILLATION
     Dosage: 360 MG, QD (160MG IN AM AND 200MG IN PM)
     Route: 048
     Dates: start: 2011, end: 20140903
  10. LANOXIN [Concomitant]
     Active Substance: DIGOXIN
  11. POTASSIUM CHLORIDE. [Concomitant]
     Active Substance: POTASSIUM CHLORIDE
  12. DIGOXIN. [Suspect]
     Active Substance: DIGOXIN
     Dosage: 125 ?G, QD
  13. NOVOLOG [Concomitant]
     Active Substance: INSULIN ASPART
  14. WARFARIN [Concomitant]
     Active Substance: WARFARIN
  15. MULTIVITAMIN                       /00097801/ [Concomitant]
     Active Substance: VITAMINS
  16. DILTIAZEM [Suspect]
     Active Substance: DILTIAZEM
     Dosage: UNK
     Dates: start: 201409
  17. INSULIN DETEMIR [Concomitant]
     Active Substance: INSULIN DETEMIR
  18. DYAZIDE [Concomitant]
     Active Substance: HYDROCHLOROTHIAZIDE\TRIAMTERENE

REACTIONS (6)
  - Loss of consciousness [Recovered/Resolved]
  - Drug ineffective [Recovered/Resolved]
  - Wheezing [Recovered/Resolved]
  - Bradycardia [Recovered/Resolved]
  - Multiple fractures [Recovered/Resolved]
  - Syncope [Recovered/Resolved]

NARRATIVE: CASE EVENT DATE: 201409
